FAERS Safety Report 5174209-6 (Version None)
Quarter: 2006Q4

REPORT INFORMATION
  Report Type: 
  Country: None (occurrence: None)
  Receive Date: 20061214
  Receipt Date: 20061204
  Transmission Date: 20070319
  Serious: Yes (Other)
  Sender: FDA-Public Use
  Company Number: US-JNJFOC-20061003173

PATIENT
  Sex: Female
  Weight: 60.33 kg

DRUGS (12)
  1. FENTANYL TRANSDERMAL SYSTEM [Suspect]
     Indication: MULTIPLE FRACTURES
     Route: 062
  2. FENTANYL TRANSDERMAL SYSTEM [Suspect]
     Indication: BACK PAIN
     Route: 062
  3. FORTEO [Concomitant]
     Route: 058
  4. HUMALOG [Concomitant]
     Indication: DIABETES MELLITUS
     Dosage: TO SLIDING SCALE
     Route: 058
  5. LANTUS [Concomitant]
     Indication: DIABETES MELLITUS
     Dosage: TO SLIDING SCALE
     Route: 058
  6. SYNTHROID [Concomitant]
     Indication: HYPOTHYROIDISM
     Route: 048
  7. PLAQUENIL [Concomitant]
     Dosage: EVENING ONLY
     Route: 048
  8. PLAQUENIL [Concomitant]
     Indication: ARTHRITIS
     Dosage: MORNING ONLY
     Route: 048
  9. ZOCOR [Concomitant]
     Route: 048
  10. AMITRIPTYLINC [Concomitant]
     Route: 048
  11. B-12 [Concomitant]
     Indication: PERNICIOUS ANAEMIA
     Route: 050
  12. PRIMIDONE [Concomitant]
     Indication: TREMOR
     Route: 048

REACTIONS (4)
  - BLOOD GLUCOSE DECREASED [None]
  - HEADACHE [None]
  - PRESYNCOPE [None]
  - VOMITING [None]
